FAERS Safety Report 8145452-9 (Version None)
Quarter: 2012Q1

REPORT INFORMATION
  Report Type: 
  Country: None (occurrence: None)
  Receive Date: 20120217
  Receipt Date: 20120213
  Transmission Date: 20120608
  Serious: Yes (Hospitalization)
  Sender: FDA-Public Use
  Company Number: US-TEVA-322789USA

PATIENT
  Age: 33 Year
  Sex: Male

DRUGS (7)
  1. VALPROIC ACID [Concomitant]
     Dosage: 750MG
     Route: 065
  2. ZIPRASIDONE HYDROCHLORIDE [Suspect]
     Indication: SCHIZOAFFECTIVE DISORDER
     Dosage: TITRATED TO 160 MG/DAY; THEN INCREASED TO 240 MG/DAY BY APRIL 2008
     Route: 065
     Dates: start: 20071001
  3. CLOZAPINE [Suspect]
     Indication: SCHIZOAFFECTIVE DISORDER
     Dosage: 400MG; THEN TITRATED TO 650 MG/DAY OVER 2MO
     Route: 065
     Dates: start: 20070701
  4. ZIPRASIDONE HYDROCHLORIDE [Suspect]
     Dosage: 240 MG/DAY
     Route: 065
     Dates: start: 20071001
  5. METHYLPREDNISOLONE ACETATE [Concomitant]
     Indication: BACK PAIN
     Dates: start: 20080701, end: 20080701
  6. CLOZAPINE [Suspect]
     Dosage: 650 MG/DAY
     Route: 065
     Dates: start: 20070701
  7. ATORVASTATIN [Concomitant]
     Dosage: 20MG
     Route: 065

REACTIONS (3)
  - BLOOD CREATINE PHOSPHOKINASE INCREASED [None]
  - LEUKOCYTOSIS [None]
  - RHABDOMYOLYSIS [None]
